FAERS Safety Report 7593137-X (Version None)
Quarter: 2011Q3

REPORT INFORMATION
  Report Type: 
  Country: None (occurrence: None)
  Receive Date: 20110706
  Receipt Date: 20110622
  Transmission Date: 20111222
  Serious: Yes (Life-Threatening, Hospitalization)
  Sender: FDA-Public Use
  Company Number: CN-JNJFOC-20110700644

PATIENT
  Age: 49 Year
  Sex: Male
  Weight: 50 kg

DRUGS (4)
  1. REMICADE [Suspect]
     Indication: RHEUMATOID ARTHRITIS
     Dosage: 4TH INFUSION
     Route: 042
     Dates: start: 20110430
  2. REMICADE [Suspect]
     Dosage: 5TH INFUSION
     Route: 042
     Dates: start: 20110622
  3. REMICADE [Suspect]
     Route: 042
  4. DEXAMETHASONE [Concomitant]
     Indication: PREMEDICATION
     Route: 042
     Dates: start: 20110622, end: 20110622

REACTIONS (8)
  - INFUSION RELATED REACTION [None]
  - SCLERODERMA [None]
  - VASCULITIS [None]
  - ARRHYTHMIA [None]
  - LARYNGEAL OEDEMA [None]
  - PRURITUS [None]
  - DYSPNOEA [None]
  - RASH [None]
